FAERS Safety Report 5854738-X (Version None)
Quarter: 2008Q3

REPORT INFORMATION
  Report Type: 
  Country: None (occurrence: None)
  Receive Date: 20080822
  Receipt Date: 20071218
  Transmission Date: 20090109
  Serious: No
  Sender: FDA-Public Use
  Company Number: US-ABBOTT-07P-163-0431193-00

PATIENT
  Sex: Female
  Weight: 71.278 kg

DRUGS (3)
  1. SYNTHROID [Suspect]
     Indication: THYROID NEOPLASM
     Route: 048
     Dates: start: 20071121
  2. SYNTHROID [Suspect]
     Indication: GOITRE
  3. SUMATRIPTAN SUCCINATE [Concomitant]
     Indication: MIGRAINE
     Route: 048

REACTIONS (2)
  - FATIGUE [None]
  - WEIGHT INCREASED [None]
